FAERS Safety Report 23917319 (Version 1)
Quarter: 2024Q2

REPORT INFORMATION
  Report Type: Report from Study
  Country: US (occurrence: US)
  Receive Date: 20240529
  Receipt Date: 20240529
  Transmission Date: 20240716
  Serious: No
  Sender: FDA-Public Use
  Company Number: US-AstraZeneca-CH-00632672A

PATIENT
  Sex: Female

DRUGS (1)
  1. STRENSIQ [Suspect]
     Active Substance: ASFOTASE ALFA
     Indication: Hypophosphatasia
     Dosage: 168 MILLIGRAM, TIW
     Route: 058
     Dates: start: 20240124

REACTIONS (2)
  - Injection site bruising [Not Recovered/Not Resolved]
  - Hidradenitis [Not Recovered/Not Resolved]
